FAERS Safety Report 20840777 (Version 2)
Quarter: 2022Q3

REPORT INFORMATION
  Report Type: Spontaneous
  Country: US (occurrence: US)
  Receive Date: 20220517
  Receipt Date: 20220809
  Transmission Date: 20221027
  Serious: No
  Sender: FDA-Public Use
  Company Number: US-PFIZER INC-202200617985

PATIENT
  Age: 64 Year
  Sex: Female

DRUGS (1)
  1. IBRANCE [Suspect]
     Active Substance: PALBOCICLIB
     Dosage: 100 MG
     Dates: start: 20220424

REACTIONS (5)
  - Pain [Unknown]
  - Fatigue [Unknown]
  - Somnolence [Unknown]
  - Sensitive skin [Unknown]
  - Pruritus [Unknown]
